FAERS Safety Report 20713303 (Version 1)
Quarter: 2022Q2

REPORT INFORMATION
  Report Type: Spontaneous
  Country: US (occurrence: None)
  Receive Date: 20220414
  Receipt Date: 20220414
  Transmission Date: 20220720
  Serious: Yes (Other)
  Sender: FDA-Public Use
  Company Number: None

PATIENT
  Age: 52 Year
  Sex: Female
  Weight: 62.1 kg

DRUGS (5)
  1. HERBALS\MITRAGYNINE [Suspect]
     Active Substance: HERBALS\MITRAGYNINE
     Indication: Fatigue
     Dates: start: 20200103, end: 20220414
  2. VITAMIN B [Concomitant]
     Active Substance: VITAMIN B
  3. VITAMIN C [Concomitant]
     Active Substance: ASCORBIC ACID
  4. Potasium [Concomitant]
  5. MAGNESIUM [Concomitant]
     Active Substance: MAGNESIUM

REACTIONS (4)
  - Adverse drug reaction [None]
  - Blood potassium decreased [None]
  - Product complaint [None]
  - Drug dependence [None]

NARRATIVE: CASE EVENT DATE: 20201018
